FAERS Safety Report 18334335 (Version 4)
Quarter: 2021Q4

REPORT INFORMATION
  Report Type: Spontaneous
  Country: US (occurrence: US)
  Receive Date: 20201001
  Receipt Date: 20211015
  Transmission Date: 20220303
  Serious: No
  Sender: FDA-Public Use
  Company Number: US-PFIZER INC-2019220998

PATIENT
  Age: 65 Year
  Sex: Male

DRUGS (3)
  1. LYRICA [Suspect]
     Active Substance: PREGABALIN
     Indication: Neuropathy peripheral
     Dosage: 150 MG, TWICE A DAY
     Route: 048
  2. LYRICA [Suspect]
     Active Substance: PREGABALIN
     Indication: Back pain
     Dosage: 225 MG, TWICE A DAY
     Route: 048
     Dates: start: 20200217
  3. LYRICA [Suspect]
     Active Substance: PREGABALIN
     Dosage: 225 MG, 1 CAPSULE TWICE A DAY
     Route: 048
     Dates: start: 20210909

REACTIONS (1)
  - Hypoacusis [Unknown]
